FAERS Safety Report 7124682-9 (Version None)
Quarter: 2010Q4

REPORT INFORMATION
  Report Type: 
  Country: None (occurrence: None)
  Receive Date: 20101129
  Receipt Date: 20101115
  Transmission Date: 20110411
  Serious: Yes (Other)
  Sender: FDA-Public Use
  Company Number: US-RANBAXY-2010US-39508

PATIENT
  Age: 66 Year
  Sex: Male

DRUGS (5)
  1. LEVOFLOXACIN [Suspect]
     Indication: PLEURAL EFFUSION
     Dosage: 500 MG, QD
     Route: 048
  2. VERAPAMIL [Suspect]
     Indication: ATRIAL FIBRILLATION
     Dosage: UNK, UNK
     Route: 065
  3. VERAPAMIL HCL [Suspect]
     Indication: ATRIAL FIBRILLATION
     Dosage: 120 MG, QD
     Route: 048
  4. DISOPYRAMIDE [Suspect]
     Indication: ATRIAL FIBRILLATION
     Dosage: 300 MG, QD
     Route: 048
  5. CLARITHROMYCIN [Suspect]
     Indication: BRONCHITIS CHRONIC
     Dosage: 200 MG, QD
     Route: 048

REACTIONS (2)
  - DRUG INTERACTION [None]
  - TORSADE DE POINTES [None]
